FAERS Safety Report 22848474 (Version 2)
Quarter: 2023Q4

REPORT INFORMATION
  Report Type: Spontaneous
  Country: US (occurrence: US)
  Receive Date: 20230822
  Receipt Date: 20231205
  Transmission Date: 20240110
  Serious: No
  Sender: FDA-Public Use
  Company Number: US-BRISTOL-MYERS SQUIBB COMPANY-2023-117767

PATIENT
  Age: 58 Year
  Sex: Male
  Weight: 122.02 kg

DRUGS (1)
  1. POMALYST [Suspect]
     Active Substance: POMALIDOMIDE
     Indication: Plasma cell myeloma
     Dosage: FREQUENCY: 3 WKS ON,1 OFF
     Route: 048

REACTIONS (1)
  - Nasopharyngitis [Recovered/Resolved]
